FAERS Safety Report 19612257 (Version 3)
Quarter: 2021Q3

REPORT INFORMATION
  Report Type: Report from Study
  Country: CA (occurrence: CA)
  Receive Date: 20210727
  Receipt Date: 20210824
  Transmission Date: 20211014
  Serious: Yes (Hospitalization, Other)
  Sender: FDA-Public Use
  Company Number: CA-JNJFOC-20210648416

PATIENT
  Age: 73 Year
  Sex: Male

DRUGS (1)
  1. REMICADE [Suspect]
     Active Substance: INFLIXIMAB
     Indication: COLITIS ULCERATIVE
     Dosage: PATIENT HAD WEEK 0 DOSE.?RECEIVED INFUSION ON 23?JUN?2021
     Route: 042
     Dates: start: 20210609

REACTIONS (4)
  - Anaemia [Unknown]
  - Enterostomy [Unknown]
  - Malnutrition [Unknown]
  - Colectomy total [Recovering/Resolving]

NARRATIVE: CASE EVENT DATE: 20210622
